FAERS Safety Report 19448165 (Version 2)
Quarter: 2021Q2

REPORT INFORMATION
  Report Type: Spontaneous
  Country: US (occurrence: US)
  Receive Date: 20210622
  Receipt Date: 20210625
  Transmission Date: 20210717
  Serious: Yes (Hospitalization, Other)
  Sender: FDA-Public Use
  Company Number: US-PFIZER INC-2021726894

PATIENT
  Sex: Male
  Weight: 3.39 kg

DRUGS (2)
  1. COCAINE [Suspect]
     Active Substance: COCAINE
     Route: 063
  2. NICOTINE. [Suspect]
     Active Substance: NICOTINE
     Dosage: UNK
     Route: 063

REACTIONS (5)
  - Hyporeflexia [Unknown]
  - Meconium aspiration syndrome [Unknown]
  - Neonatal respiratory distress syndrome [Unknown]
  - Maternal exposure during breast feeding [Unknown]
  - Lethargy [Unknown]
